FAERS Safety Report 5709633-3 (Version None)
Quarter: 2008Q2

REPORT INFORMATION
  Report Type: 
  Country: None (occurrence: None)
  Receive Date: 20080418
  Receipt Date: 20080411
  Transmission Date: 20081010
  Serious: Yes (Hospitalization)
  Sender: FDA-Public Use
  Company Number: B0516285A

PATIENT
  Sex: Female
  Weight: 80 kg

DRUGS (3)
  1. LAMICTAL [Suspect]
     Indication: LENNOX-GASTAUT SYNDROME
     Dosage: 700MG PER DAY
     Route: 065
  2. RUFINAMIDE [Suspect]
     Indication: LENNOX-GASTAUT SYNDROME
     Dosage: 2400MG PER DAY
     Route: 048
  3. TOPIRAMATE [Suspect]
     Indication: LENNOX-GASTAUT SYNDROME
     Dosage: 300MG PER DAY
     Route: 065

REACTIONS (3)
  - AMENORRHOEA [None]
  - CONVULSION [None]
  - DRUG INTERACTION [None]
